FAERS Safety Report 4642530-3 (Version None)
Quarter: 2005Q2

REPORT INFORMATION
  Report Type: 
  Country: None (occurrence: None)
  Receive Date: 20050422
  Receipt Date: 20050420
  Transmission Date: 20051028
  Serious: Yes (Other)
  Sender: FDA-Public Use
  Company Number: US-GLAXOSMITHKLINE-A0554961A

PATIENT
  Age: 61 Year
  Sex: Female
  Weight: 54 kg

DRUGS (5)
  1. ECOTRIN REGULAR STRENGTH TABLETS [Suspect]
     Indication: PROPHYLAXIS
     Route: 048
     Dates: start: 20050312, end: 20050420
  2. VITAMIN C [Concomitant]
     Route: 048
  3. VITAMIN B COMPLEX CAP [Concomitant]
     Route: 048
  4. MULTI-VITAMIN [Concomitant]
     Route: 048
  5. ACCUPRIL [Concomitant]
     Dosage: 20MG PER DAY
     Route: 048

REACTIONS (6)
  - EPISTAXIS [None]
  - FEELING ABNORMAL [None]
  - HAIR DISORDER [None]
  - HAIR TEXTURE ABNORMAL [None]
  - HYPERSENSITIVITY [None]
  - SUICIDAL IDEATION [None]
